FAERS Safety Report 7822189-4 (Version None)
Quarter: 2011Q4

REPORT INFORMATION
  Report Type: 
  Country: None (occurrence: None)
  Receive Date: 20111018
  Receipt Date: 20111010
  Transmission Date: 20120403
  Serious: Yes (Death, Hospitalization, Other)
  Sender: FDA-Public Use
  Company Number: SI-CELGENEUS-261-50794-11070419

PATIENT
  Sex: Male

DRUGS (5)
  1. VIDAZA [Suspect]
     Route: 058
     Dates: end: 20110829
  2. VIDAZA [Suspect]
     Indication: MYELODYSPLASTIC SYNDROME
     Route: 058
     Dates: start: 20101215
  3. PANTOPRAZOLE [Concomitant]
     Indication: PROPHYLAXIS
     Route: 065
  4. CYKLOKAPRON [Concomitant]
     Route: 065
  5. CORDARONE [Concomitant]
     Route: 065

REACTIONS (3)
  - THROMBOCYTOPENIA [None]
  - PNEUMONIA FUNGAL [None]
  - LUNG NEOPLASM MALIGNANT [None]
